FAERS Safety Report 6186777-6 (Version None)
Quarter: 2009Q2

REPORT INFORMATION
  Report Type: 
  Country: None (occurrence: None)
  Receive Date: 20090512
  Receipt Date: 20090504
  Transmission Date: 20091009
  Serious: Yes (Other)
  Sender: FDA-Public Use
  Company Number: DE-ROCHE-621929

PATIENT
  Age: 48 Year
  Sex: Male

DRUGS (1)
  1. INTERFERON ALFA [Suspect]
     Route: 058
     Dates: start: 20080801, end: 20090205

REACTIONS (7)
  - DEPRESSION [None]
  - DISTURBANCE IN ATTENTION [None]
  - HEPATIC ENZYME INCREASED [None]
  - LEUKOPENIA [None]
  - MEMORY IMPAIRMENT [None]
  - SUICIDAL IDEATION [None]
  - THROMBOCYTOPENIA [None]
